FAERS Safety Report 5164266-5 (Version None)
Quarter: 2006Q4

REPORT INFORMATION
  Report Type: 
  Country: None (occurrence: None)
  Receive Date: 20060918
  Receipt Date: 20051024
  Transmission Date: 20070319
  Serious: Yes (Hospitalization)
  Sender: FDA-Public Use
  Company Number: US-JNJFOC-20051005570

PATIENT
  Age: 10 Year
  Sex: Male
  Weight: 53.0709 kg

DRUGS (1)
  1. TOPAMAX [Suspect]
     Indication: DRUG THERAPY
     Dosage: 25 MG, 1 IN 1 DAY, ORAL
     Route: 048
     Dates: start: 20050101, end: 20050101

REACTIONS (4)
  - EYE PAIN [None]
  - INTRAOCULAR PRESSURE INCREASED [None]
  - VISION BLURRED [None]
  - VOMITING [None]
